FAERS Safety Report 23528060 (Version 1)
Quarter: 2024Q1

REPORT INFORMATION
  Report Type: Report from Study
  Country: FI (occurrence: FI)
  Receive Date: 20240215
  Receipt Date: 20240215
  Transmission Date: 20240410
  Serious: Yes (Other)
  Sender: FDA-Public Use
  Company Number: FI-MYLANLABS-2024M1013430

PATIENT
  Age: 36 Year
  Sex: Male

DRUGS (15)
  1. CLOZAPINE [Suspect]
     Active Substance: CLOZAPINE
     Indication: Schizoaffective disorder
     Dosage: 225 MILLIGRAM (50 MG + 25 MG + 150 MG)
     Route: 048
     Dates: start: 2014
  2. ATROPINE [Concomitant]
     Active Substance: ATROPINE\ATROPINE SULFATE
     Dosage: 1 DROP, PRN (UNDER TONGUE AS NEEDED)
     Route: 060
  3. DIAZEPAM [Concomitant]
     Active Substance: DIAZEPAM
     Indication: Anxiety
     Dosage: 1 DOSAGE FORM, PRN (1 TABLET (2 MG) ORALLY 1 TO 3 TIMES A DAY AS NEEDED)
     Route: 048
  4. DIAZEPAM [Concomitant]
     Active Substance: DIAZEPAM
     Dosage: 0.5 DOSAGE FORM, PRN (0.5 TABLET (2.5 MG) ORALLY 1 TO 3 TIMES A DAY AS NEEDED)
     Route: 048
  5. IBUPROFEN [Concomitant]
     Active Substance: IBUPROFEN
     Indication: Pain
     Dosage: 1 DOSAGE FORM, PRN (1 TO 3 TIMES A DAY AS NEEDED)
     Route: 048
  6. QUETIAPINE FUMARATE [Concomitant]
     Active Substance: QUETIAPINE FUMARATE
     Dosage: 25 MILLIGRAM, PRN (ORALLY AS NEEDED)
     Route: 048
  7. DEVISOL [Concomitant]
     Dosage: 20 MICROGRAM, QD (ONCE A  DAY AS NEEDED)
     Route: 048
  8. POLYETHYLENE GLYCOL 4000 [Concomitant]
     Active Substance: POLYETHYLENE GLYCOL 4000
     Dosage: UNK, PRN (ONCE OR TWICE A DAY AS NEEDED)
     Route: 048
  9. MELATONIN VITABALANS [Concomitant]
     Indication: Sleep disorder
     Dosage: 3 MILLIGRAM, PM (ONCE A DAY, IN THE EVENING)
     Route: 048
  10. VALPROIC ACID [Concomitant]
     Active Substance: VALPROIC ACID
     Dosage: 800 MILLIGRAM, BID (TWICE A DAY, IN THE MORNING AND IN THE EVENING)
     Route: 048
  11. LYRICA [Concomitant]
     Active Substance: PREGABALIN
     Dosage: 300 MILLIGRAM, BID (TWICE A DAY, IN THE MORNING AND IN THE EVENING)
     Route: 048
  12. PROPRANOLOL HYDROCHLORIDE [Concomitant]
     Active Substance: PROPRANOLOL HYDROCHLORIDE
     Dosage: 0.5 DOSAGE FORM, PRN (1 TO 2 TIMES PER DAY AS NEEDED)
     Route: 048
  13. CYANOCOBALAMIN [Concomitant]
     Active Substance: CYANOCOBALAMIN
     Indication: Vitamin supplementation
     Dosage: 1 DOSAGE FORM, PRN (ONCE A DAY AS NEEDED)
     Route: 048
  14. FEXOFENADINE [Concomitant]
     Active Substance: FEXOFENADINE HYDROCHLORIDE
     Dosage: 120 MILLIGRAM, AM (ONCE A DAY, IN THE MORNING)
     Route: 048
  15. VORTIOXETINE [Concomitant]
     Active Substance: VORTIOXETINE
     Dosage: 20 MILLIGRAM, AM (ONCE A DAY, IN THE MORNING)
     Route: 048

REACTIONS (2)
  - Epilepsy [Not Recovered/Not Resolved]
  - Off label use [Not Recovered/Not Resolved]

NARRATIVE: CASE EVENT DATE: 20140101
